FAERS Safety Report 7279176-7 (Version None)
Quarter: 2011Q1

REPORT INFORMATION
  Report Type: 
  Country: None (occurrence: None)
  Receive Date: 20110207
  Receipt Date: 20110127
  Transmission Date: 20110831
  Serious: Yes (Hospitalization)
  Sender: FDA-Public Use
  Company Number: JP-CELGENEUS-087-21880-11012826

PATIENT
  Sex: Male

DRUGS (9)
  1. REVLIMID [Suspect]
     Indication: MULTIPLE MYELOMA
     Dosage: 20-25MG
     Route: 048
     Dates: start: 20101110, end: 20110125
  2. CELECOXIB [Concomitant]
     Indication: MULTIPLE MYELOMA
     Route: 048
     Dates: start: 20101110
  3. PARIET [Concomitant]
     Indication: PROPHYLAXIS
     Route: 048
     Dates: start: 20101110
  4. ACTOS [Concomitant]
     Indication: DIABETES MELLITUS
     Route: 048
     Dates: start: 20101110
  5. NESINA [Concomitant]
     Indication: DIABETES MELLITUS
     Route: 048
     Dates: start: 20101110
  6. SELBEX [Concomitant]
     Indication: PROPHYLAXIS
     Route: 048
     Dates: start: 20101110
  7. LENADEX [Suspect]
     Indication: MULTIPLE MYELOMA
     Route: 048
     Dates: start: 20101110, end: 20101207
  8. SEIBULE [Concomitant]
     Indication: DIABETES MELLITUS
     Route: 048
     Dates: start: 20101110
  9. ASPIRIN [Concomitant]
     Indication: PROPHYLAXIS
     Route: 048
     Dates: start: 20101110

REACTIONS (3)
  - WHITE BLOOD CELL COUNT DECREASED [None]
  - DIARRHOEA [None]
  - C-REACTIVE PROTEIN INCREASED [None]
